FAERS Safety Report 12631640 (Version 2)
Quarter: 2016Q3

REPORT INFORMATION
  Report Type: Spontaneous
  Country: US (occurrence: US)
  Receive Date: 20160808
  Receipt Date: 20160808
  Transmission Date: 20161109
  Serious: No
  Sender: FDA-Public Use
  Company Number: US-BEH-2015055102

PATIENT
  Sex: Female
  Weight: 67 kg

DRUGS (34)
  1. HIZENTRA [Suspect]
     Active Substance: HUMAN IMMUNOGLOBULIN G
     Indication: MYALGIA
     Route: 058
  2. MIRALAX [Concomitant]
     Active Substance: POLYETHYLENE GLYCOL 3350
  3. HYDROCORTISONE. [Concomitant]
     Active Substance: HYDROCORTISONE
  4. HIZENTRA [Suspect]
     Active Substance: HUMAN IMMUNOGLOBULIN G
     Indication: AUTOIMMUNE THYROIDITIS
     Route: 058
  5. ACETAMINOPHEN. [Concomitant]
     Active Substance: ACETAMINOPHEN
  6. CALCIUM +D [Concomitant]
     Active Substance: CALCIUM\VITAMIN D
  7. METAXALONE. [Concomitant]
     Active Substance: METAXALONE
  8. KLONOPIN [Concomitant]
     Active Substance: CLONAZEPAM
  9. HIZENTRA [Suspect]
     Active Substance: HUMAN IMMUNOGLOBULIN G
     Indication: MYOSITIS
     Route: 058
  10. ZANAFLEX [Concomitant]
     Active Substance: TIZANIDINE HYDROCHLORIDE
  11. BENTYL [Concomitant]
     Active Substance: DICYCLOMINE HYDROCHLORIDE
  12. AMOXICILLIN. [Concomitant]
     Active Substance: AMOXICILLIN
  13. CYTOMEL [Concomitant]
     Active Substance: LIOTHYRONINE SODIUM
  14. LAMICTAL [Concomitant]
     Active Substance: LAMOTRIGINE
  15. MDA/BCDGPL CREAM [Concomitant]
  16. DETROL [Concomitant]
     Active Substance: TOLTERODINE TARTRATE
  17. CELEBREX [Concomitant]
     Active Substance: CELECOXIB
  18. PYRIDIUM [Concomitant]
     Active Substance: PHENAZOPYRIDINE
  19. SYNTHROID [Concomitant]
     Active Substance: LEVOTHYROXINE SODIUM
  20. SPIRONOLACTONE. [Concomitant]
     Active Substance: SPIRONOLACTONE
  21. VITAMIN B12 [Concomitant]
     Active Substance: CYANOCOBALAMIN
  22. EPIPEN [Concomitant]
     Active Substance: EPINEPHRINE
     Indication: ANAPHYLACTIC REACTION
  23. CORTEF [Concomitant]
     Active Substance: HYDROCORTISONE
  24. TRAZODONE [Concomitant]
     Active Substance: TRAZODONE HYDROCHLORIDE
  25. LYRICA [Concomitant]
     Active Substance: PREGABALIN
  26. ATIVAN [Concomitant]
     Active Substance: LORAZEPAM
  27. HIZENTRA [Suspect]
     Active Substance: HUMAN IMMUNOGLOBULIN G
     Indication: CHRONIC FATIGUE SYNDROME
     Route: 058
  28. CORTICOSTEROIDS [Concomitant]
     Active Substance: CORTICOSTEROID NOS
  29. DIPHENHYDRAMINE. [Concomitant]
     Active Substance: DIPHENHYDRAMINE
  30. LIDOCAINE. [Concomitant]
     Active Substance: LIDOCAINE
  31. POTASSIUM CHLORIDE. [Concomitant]
     Active Substance: POTASSIUM CHLORIDE
  32. DULCOLAX NOS [Concomitant]
     Active Substance: BISACODYL OR DOCUSATE SODIUM
  33. TOFRANIL [Concomitant]
     Active Substance: IMIPRAMINE HYDROCHLORIDE
  34. NORCO [Concomitant]
     Active Substance: ACETAMINOPHEN\HYDROCODONE BITARTRATE

REACTIONS (1)
  - Fatigue [Unknown]
